FAERS Safety Report 12663913 (Version 1)
Quarter: 2016Q3

REPORT INFORMATION
  Report Type: Spontaneous
  Country: US (occurrence: None)
  Receive Date: 20160817
  Receipt Date: 20160817
  Transmission Date: 20161109
  Serious: Yes (Hospitalization)
  Sender: FDA-Public Use
  Company Number: None

PATIENT
  Age: 58 Year
  Sex: Female
  Weight: 80.3 kg

DRUGS (1)
  1. MEMANTINE HYDROCHLORIDE. [Suspect]
     Active Substance: MEMANTINE HYDROCHLORIDE
     Dates: end: 20160810

REACTIONS (4)
  - Brain oedema [None]
  - Muscular weakness [None]
  - Gait disturbance [None]
  - Brain midline shift [None]

NARRATIVE: CASE EVENT DATE: 20160810
